FAERS Safety Report 8913889 (Version 2)
Quarter: 2012Q4

REPORT INFORMATION
  Report Type: 
  Country: US (occurrence: US)
  Receive Date: 20121116
  Receipt Date: 20121217
  Transmission Date: 20130627
  Serious: Yes (Other)
  Sender: FDA-Public Use
  Company Number: US-BIOGENIDEC-2012BI053854

PATIENT
  Age: 30 Year
  Sex: Female

DRUGS (10)
  1. TYSABRI [Suspect]
     Indication: MULTIPLE SCLEROSIS
     Route: 042
     Dates: start: 20100715
  2. DITROPAN [Concomitant]
  3. ZYRTEC [Concomitant]
  4. BIOTIN [Concomitant]
  5. MULTIVITAMIN [Concomitant]
  6. FISH OIL [Concomitant]
  7. PROBIOTIC [Concomitant]
  8. VITAMIN D [Concomitant]
  9. GLUTAMINE [Concomitant]
  10. LYSINE [Concomitant]

REACTIONS (1)
  - Basal cell carcinoma [Not Recovered/Not Resolved]
